FAERS Safety Report 5593628-7 (Version None)
Quarter: 2008Q1

REPORT INFORMATION
  Report Type: 
  Country: None (occurrence: None)
  Receive Date: 20080116
  Receipt Date: 20080109
  Transmission Date: 20080703
  Serious: Yes (Life-Threatening, Hospitalization, Disabling, Other)
  Sender: FDA-Public Use
  Company Number: GB-RANBAXY-2008RR-12487

PATIENT

DRUGS (13)
  1. AMOXICILLIN CAPSULES BP 500MG [Suspect]
     Dosage: 500 MG, TID
     Route: 048
     Dates: start: 20071217, end: 20071222
  2. WARFARIN SODIUM [Suspect]
     Dosage: UNK
     Route: 048
     Dates: end: 20071223
  3. ALENDRONIC ACID 70MG TABLETS [Concomitant]
     Dosage: 70 MG, 1/WEEK
     Route: 048
  4. ASPIRIN TABLETS BP 300MG [Concomitant]
     Dosage: 75 MG, UNK
     Route: 048
     Dates: end: 20071222
  5. ATENOLOL TABLETS BP 50MG [Concomitant]
     Dosage: 50 MG, UNK
     Route: 048
  6. ATENOLOL [Concomitant]
     Dosage: 325 MG, UNK
     Route: 042
     Dates: start: 20060101
  7. BUMETANIDE [Concomitant]
     Dosage: 1 MG, QD
     Route: 048
  8. CACICHEW D3 [Concomitant]
     Dosage: 2 DF, UNK
     Route: 048
  9. INFLIXIMAB [Concomitant]
     Indication: COLITIS ULCERATIVE
  10. PENTASA [Concomitant]
     Dosage: 1 G, TID
     Route: 048
  11. PREDNISOLONE [Concomitant]
     Indication: COLITIS ULCERATIVE
     Route: 048
  12. RAMIPRIL 10 MG CAPSULES [Concomitant]
     Dosage: 10 MG, QD
     Route: 048
     Dates: start: 20060101
  13. TRIMIPRAMINE MALEATE [Concomitant]
     Dosage: 100 MG, QD
     Route: 048
     Dates: start: 20070129

REACTIONS (7)
  - ABDOMINAL DISTENSION [None]
  - ABDOMINAL PAIN LOWER [None]
  - CONTUSION [None]
  - DRUG INTERACTION [None]
  - HAEMATOMA [None]
  - INTERNATIONAL NORMALISED RATIO INCREASED [None]
  - RECTAL HAEMORRHAGE [None]
